FAERS Safety Report 5147990-X (Version None)
Quarter: 2006Q4

REPORT INFORMATION
  Report Type: 
  Country: None (occurrence: None)
  Receive Date: 20061110
  Receipt Date: 20061012
  Transmission Date: 20070319
  Serious: Yes (Hospitalization)
  Sender: FDA-Public Use
  Company Number: JP-BAYER-200611121BYL

PATIENT
  Age: 79 Year
  Sex: Female
  Weight: 40 kg

DRUGS (4)
  1. AVELOX [Suspect]
     Indication: BRONCHITIS ACUTE
     Dosage: TOTAL DAILY DOSE: 400 MG  UNIT DOSE: 400 MG
     Route: 048
     Dates: start: 20061006, end: 20061010
  2. NIFLAN [Concomitant]
     Indication: BRONCHITIS ACUTE
     Dosage: TOTAL DAILY DOSE: 225 MG  UNIT DOSE: 75 MG
     Route: 048
     Dates: start: 20061006, end: 20061010
  3. PL [Concomitant]
     Indication: BRONCHITIS ACUTE
     Dosage: UNIT DOSE: 1 G
     Route: 048
     Dates: start: 20061006, end: 20061010
  4. HUSCODE [Concomitant]
     Indication: BRONCHITIS ACUTE
     Dosage: TOTAL DAILY DOSE: 18 MG  UNIT DOSE: 6 MG
     Route: 048
     Dates: start: 20061006, end: 20061010

REACTIONS (3)
  - CONVULSION [None]
  - DYSKINESIA [None]
  - MUSCLE SPASMS [None]
